FAERS Safety Report 9696187 (Version 3)
Quarter: 2013Q4

REPORT INFORMATION
  Report Type: Spontaneous
  Country: FR (occurrence: None)
  Receive Date: 20131115
  Receipt Date: 20131218
  Transmission Date: 20140711
  Serious: Yes (Hospitalization)
  Sender: FDA-Public Use
  Company Number: SP07216

PATIENT
  Age: 57 Year
  Sex: Female

DRUGS (1)
  1. OSMOPREP [Suspect]
     Indication: BOWEL PREPARATION
     Dosage: (32 DOSAGE FORSM), ORAL
     Route: 048
     Dates: start: 20131106, end: 20131106

REACTIONS (5)
  - Gastritis haemorrhagic [None]
  - Melaena [None]
  - Anaemia [None]
  - Inappropriate schedule of drug administration [None]
  - Headache [None]
